FAERS Safety Report 9180209 (Version 1)
Quarter: 2013Q1

REPORT INFORMATION
  Report Type: Spontaneous
  Country: US (occurrence: US)
  Receive Date: 20130322
  Receipt Date: 20130322
  Transmission Date: 20140127
  Serious: No
  Sender: FDA-Public Use
  Company Number: US-009507513-1303USA010815

PATIENT
  Age: 74 Year
  Sex: Male

DRUGS (5)
  1. JANUVIA [Suspect]
     Indication: TYPE 2 DIABETES MELLITUS
     Dosage: 100 MG, QD
  2. GLYBURIDE [Concomitant]
  3. SIMVASTATIN TABLETS, USP [Concomitant]
  4. CYMBALTA [Concomitant]
  5. LISINOPRIL [Concomitant]

REACTIONS (2)
  - Headache [Unknown]
  - Constipation [Unknown]
